FAERS Safety Report 6566243-6 (Version None)
Quarter: 2010Q1

REPORT INFORMATION
  Report Type: 
  Country: None (occurrence: None)
  Receive Date: 20100202
  Receipt Date: 20100127
  Transmission Date: 20100710
  Serious: Yes (Hospitalization, Other)
  Sender: FDA-Public Use
  Company Number: DE-BRISTOL-MYERS SQUIBB COMPANY-14886873

PATIENT
  Age: 56 Year
  Sex: Male
  Weight: 83 kg

DRUGS (8)
  1. ORENCIA [Suspect]
     Indication: RHEUMATOID ARTHRITIS
     Route: 042
     Dates: start: 20080901
  2. ASPIRIN [Concomitant]
  3. CORTISONE [Concomitant]
  4. METOPROLOL SUCCINATE [Concomitant]
  5. HYDROCHLOROTHIAZIDE [Concomitant]
  6. CALCIUM EFFERVESCENT TABS [Concomitant]
  7. SIMVASTATIN [Concomitant]
  8. ZOLPIDEM [Concomitant]

REACTIONS (1)
  - PARESIS [None]
